FAERS Safety Report 11965256 (Version 3)
Quarter: 2016Q1

REPORT INFORMATION
  Report Type: Report from Study
  Country: US (occurrence: US)
  Receive Date: 20160127
  Receipt Date: 20160225
  Transmission Date: 20160526
  Serious: Yes (Death, Hospitalization)
  Sender: FDA-Public Use
  Company Number: US-B.I. PHARMACEUTICALS,INC./RIDGEFIELD-2015-BI-69653BI

PATIENT
  Age: 80 Year
  Sex: Male
  Weight: 90.72 kg

DRUGS (1)
  1. OFEV [Suspect]
     Active Substance: NINTEDANIB
     Indication: IDIOPATHIC PULMONARY FIBROSIS
     Dosage: 300 MG
     Route: 048
     Dates: start: 20151123

REACTIONS (2)
  - Idiopathic pulmonary fibrosis [Fatal]
  - Biopsy lung [Unknown]

NARRATIVE: CASE EVENT DATE: 20151216
